FAERS Safety Report 5739740-0 (Version None)
Quarter: 2008Q2

REPORT INFORMATION
  Report Type: 
  Country: None (occurrence: None)
  Receive Date: 20080512
  Receipt Date: 20080512
  Transmission Date: 20081010
  Serious: Yes (Hospitalization)
  Sender: FDA-Public Use
  Company Number: None

PATIENT
  Age: 79 Year
  Sex: Male

DRUGS (1)
  1. NITROFURANTOIN [Suspect]
     Indication: CYSTITIS

REACTIONS (4)
  - ALVEOLITIS ALLERGIC [None]
  - ASTHENIA [None]
  - DYSPNOEA [None]
  - PYREXIA [None]
